FAERS Safety Report 13936632 (Version 1)
Quarter: 2017Q3

REPORT INFORMATION
  Report Type: Report from Study
  Country: US (occurrence: US)
  Receive Date: 20170905
  Receipt Date: 20170905
  Transmission Date: 20171127
  Serious: Yes (Hospitalization)
  Sender: FDA-Public Use
  Company Number: US-BAYER-2017-167209

PATIENT

DRUGS (1)
  1. MAGNEVIST [Suspect]
     Active Substance: GADOPENTETATE DIMEGLUMINE
     Indication: NUCLEAR MAGNETIC RESONANCE IMAGING BRAIN
     Dosage: 18 ML, ONCE
     Route: 042
     Dates: start: 20091003, end: 20091003

REACTIONS (5)
  - Confusional state [None]
  - Disturbance in attention [None]
  - Tinnitus [Recovered/Resolved with Sequelae]
  - Distractibility [None]
  - Irritability [None]

NARRATIVE: CASE EVENT DATE: 200910
